FAERS Safety Report 4721400-6 (Version None)
Quarter: 2005Q3

REPORT INFORMATION
  Report Type: 
  Country: None (occurrence: None)
  Receive Date: 20050721
  Receipt Date: 20040810
  Transmission Date: 20060218
  Serious: No
  Sender: FDA-Public Use
  Company Number: US-BRISTOL-MYERS SQUIBB COMPANY-12666178

PATIENT
  Age: 33 Year
  Sex: Female

DRUGS (3)
  1. COUMADIN [Suspect]
     Dosage: ON AND OFF FOR 15 YEARS
  2. HEPARIN [Concomitant]
  3. LOVENOX [Concomitant]

REACTIONS (5)
  - DRUG INEFFECTIVE [None]
  - NORMAL NEWBORN [None]
  - PAIN IN EXTREMITY [None]
  - PREGNANCY [None]
  - THROMBOSIS [None]
